FAERS Safety Report 4357894-8 (Version None)
Quarter: 2004Q2

REPORT INFORMATION
  Report Type: 
  Country: None (occurrence: None)
  Receive Date: 20040514
  Receipt Date: 20040510
  Transmission Date: 20050107
  Serious: Yes (Life-Threatening)
  Sender: FDA-Public Use
  Company Number: PHBS2004ES06186

PATIENT
  Age: 66 Year
  Sex: Female

DRUGS (1)
  1. FAMVIR [Suspect]
     Indication: HERPES SIMPLEX
     Route: 048
     Dates: start: 20040401, end: 20040402

REACTIONS (1)
  - BRONCHOSPASM [None]
